FAERS Safety Report 25900537 (Version 1)
Quarter: 2025Q4

REPORT INFORMATION
  Report Type: Spontaneous
  Country: JP (occurrence: JP)
  Receive Date: 20251009
  Receipt Date: 20251009
  Transmission Date: 20260118
  Serious: Yes (Hospitalization, Disabling)
  Sender: CATALYST PHARMA
  Company Number: JP-CATALYSTPHARMACEUTICALPARTNERS-JP-CATA-25-01514

PATIENT
  Age: 86 Year
  Sex: Female

DRUGS (1)
  1. FYCOMPA [Suspect]
     Active Substance: PERAMPANEL
     Indication: Epilepsy
     Dosage: 2 MG
     Route: 048

REACTIONS (7)
  - Dysphagia [Unknown]
  - Aphasia [Unknown]
  - Hemiplegia [Unknown]
  - Pulmonary oedema [Recovering/Resolving]
  - Pneumonia [Recovering/Resolving]
  - Altered state of consciousness [Unknown]
  - Altered state of consciousness [Unknown]
